FAERS Safety Report 24444708 (Version 2)
Quarter: 2024Q4

REPORT INFORMATION
  Report Type: Report from Study
  Country: US (occurrence: US)
  Receive Date: 20241016
  Receipt Date: 20241017
  Transmission Date: 20250115
  Serious: No
  Sender: ROCHE
  Company Number: US-ROCHE-3033273

PATIENT
  Age: 66 Year
  Sex: Female
  Weight: 71.67 kg

DRUGS (18)
  1. RITUXAN [Suspect]
     Active Substance: RITUXIMAB
     Indication: Sjogren^s syndrome
     Dosage: DATE OF SERVICE: 01/APR/2022, 30/SEP/2022, 31/MAR/2021, VIAL, 02/MAY/2024
     Route: 042
     Dates: start: 201911, end: 202012
  2. RITUXAN [Suspect]
     Active Substance: RITUXIMAB
     Indication: Interstitial lung disease
  3. RITUXAN [Suspect]
     Active Substance: RITUXIMAB
     Indication: Sjogren^s syndrome
  4. CELLCEPT [Suspect]
     Active Substance: MYCOPHENOLATE MOFETIL
     Indication: Sjogren^s syndrome
     Route: 048
     Dates: start: 202107, end: 202110
  5. CELLCEPT [Suspect]
     Active Substance: MYCOPHENOLATE MOFETIL
     Indication: Sjogren^s syndrome
     Route: 048
     Dates: start: 202110, end: 20220117
  6. CELLCEPT [Suspect]
     Active Substance: MYCOPHENOLATE MOFETIL
     Route: 048
     Dates: start: 20210111
  7. DOXYCYCLINE [Concomitant]
     Active Substance: DOXYCYCLINE
  8. SYMBICORT [Concomitant]
     Active Substance: BUDESONIDE\FORMOTEROL FUMARATE DIHYDRATE
     Dosage: 160 MCG/4.5 MCG PER PUFF; 1 PUFF TWICE DAILY;
     Route: 055
     Dates: start: 2019
  9. LISINOPRIL [Concomitant]
     Active Substance: LISINOPRIL
     Indication: Hypertension
     Route: 048
     Dates: start: 20200803
  10. LEXAPRO [Concomitant]
     Active Substance: ESCITALOPRAM OXALATE
     Route: 048
     Dates: start: 20200604
  11. CLARITIN [Concomitant]
     Active Substance: LORATADINE
     Route: 048
  12. VITAMIN C [Concomitant]
     Active Substance: ASCORBIC ACID
     Route: 048
     Dates: start: 2021
  13. ZINC [Concomitant]
     Active Substance: ZINC
     Route: 048
     Dates: start: 2021
  14. TYLENOL [Concomitant]
     Active Substance: ACETAMINOPHEN
     Route: 048
  15. ALBUTEROL [Concomitant]
     Active Substance: ALBUTEROL
     Route: 055
  16. PEPCID [Concomitant]
     Active Substance: FAMOTIDINE
     Route: 048
  17. DULERA [Concomitant]
     Active Substance: FORMOTEROL FUMARATE DIHYDRATE\MOMETASONE FUROATE
     Route: 055
  18. VITAMIN D3 [Concomitant]
     Active Substance: CHOLECALCIFEROL
     Route: 048
     Dates: start: 2021

REACTIONS (10)
  - Off label use [Unknown]
  - Dyspepsia [Not Recovered/Not Resolved]
  - Poor quality sleep [Recovered/Resolved]
  - COVID-19 [Not Recovered/Not Resolved]
  - Rales [Unknown]
  - Palpitations [Recovered/Resolved]
  - Hyperhidrosis [Recovered/Resolved]
  - Dizziness [Recovered/Resolved]
  - Fatigue [Recovered/Resolved]
  - Off label use [Unknown]

NARRATIVE: CASE EVENT DATE: 20191101
